FAERS Safety Report 15019473 (Version 2)
Quarter: 2018Q4

REPORT INFORMATION
  Report Type: Spontaneous
  Country: SK (occurrence: SK)
  Receive Date: 20180617
  Receipt Date: 20181121
  Transmission Date: 20190204
  Serious: Yes (Other)
  Sender: FDA-Public Use
  Company Number: SK-BAXTER-2018BAX013941

PATIENT
  Age: 60 Year
  Sex: Male

DRUGS (10)
  1. ENDOXAN 1000 MG PRASOK NA INJEKCNY ROZTOK [Suspect]
     Active Substance: CYCLOPHOSPHAMIDE
     Dosage: DOSE OF 1 (UNIT NOT SPECIFIED) UNK UNK,QCY
     Route: 065
     Dates: start: 201507, end: 201509
  2. ENDOXAN 1000 MG PRASOK NA INJEKCNY ROZTOK [Suspect]
     Active Substance: CYCLOPHOSPHAMIDE
     Indication: MANTLE CELL LYMPHOMA
     Dosage: DOSE OF 1 (UNIT NOT SPECIFIED) UNK UNK,QCY
     Route: 065
     Dates: start: 2012
  3. RITUXIMAB. [Suspect]
     Active Substance: RITUXIMAB
     Indication: MANTLE CELL LYMPHOMA
     Dosage: DOSE OF 1 (UNIT NOT SPECIFIED) UNK UNK,QCY
     Route: 065
     Dates: start: 201207, end: 201509
  4. VINCRISTINE [Suspect]
     Active Substance: VINCRISTINE
     Indication: MANTLE CELL LYMPHOMA
     Dosage: R-CHOPEP SCHEME R-CHOP
     Route: 065
     Dates: start: 201507, end: 201509
  5. VINCRISTINE SULFATE. [Suspect]
     Active Substance: VINCRISTINE SULFATE
     Dosage: DOSE OF 1 (UNIT NOT SPECIFIED) UNK UNK,QCY
     Route: 065
     Dates: start: 201507, end: 201509
  6. PREDNISONE. [Suspect]
     Active Substance: PREDNISONE
     Dosage: DOSE OF 1 (UNIT NOT SPECIFIED) UNK UNK,QCY
     Route: 065
     Dates: start: 201507, end: 201509
  7. ETOPOSIDE. [Suspect]
     Active Substance: ETOPOSIDE
     Indication: MANTLE CELL LYMPHOMA
     Dosage: DOSE OF 1 (UNIT NOT SPECIFIED), R-CHOEP SCHEME UNK UNK,QCY
     Route: 065
     Dates: start: 201507, end: 201509
  8. VINCRISTINE SULFATE. [Suspect]
     Active Substance: VINCRISTINE SULFATE
     Indication: MANTLE CELL LYMPHOMA
     Dosage: DOSE OF 1 (UNIT NOT SPECIFIED) UNK UNK,QCY
     Route: 065
     Dates: start: 2012
  9. PREDNISONE. [Suspect]
     Active Substance: PREDNISONE
     Indication: MANTLE CELL LYMPHOMA
     Dosage: DOSE OF 1 (UNIT NOT SPECIFIED) UNK UNK,QCY
     Route: 065
     Dates: start: 2012
  10. RITUXIMAB. [Suspect]
     Active Substance: RITUXIMAB
     Dosage: DOSE OF 1 (UNIT NOT SPECIFIED)
     Route: 065
     Dates: start: 201507, end: 201509

REACTIONS (8)
  - Sinusitis [Unknown]
  - Tonsillitis [Unknown]
  - Constipation [Unknown]
  - Infection [Unknown]
  - Off label use [Unknown]
  - Stomatitis [Unknown]
  - Palpitations [Unknown]
  - Angina pectoris [Unknown]

NARRATIVE: CASE EVENT DATE: 2015
